FAERS Safety Report 9485386 (Version 2)
Quarter: 2013Q3

REPORT INFORMATION
  Report Type: Spontaneous
  Country: DE (occurrence: DE)
  Receive Date: 20130829
  Receipt Date: 20130910
  Transmission Date: 20140515
  Serious: Yes (Other)
  Sender: FDA-Public Use
  Company Number: DE-AMGEN-DEUSP2013059541

PATIENT
  Age: 88 Year
  Sex: Male

DRUGS (6)
  1. NPLATE [Suspect]
     Indication: IMMUNE THROMBOCYTOPENIC PURPURA
     Dosage: 500 MUG, UNK
     Route: 058
     Dates: start: 20130417, end: 20130821
  2. XGEVA [Concomitant]
     Indication: METASTASES TO BONE
     Dosage: UNK UNK, Q4WK
     Route: 058
     Dates: start: 201104
  3. XGEVA [Concomitant]
     Indication: PROSTATE CANCER
  4. IRON [Concomitant]
  5. TRENANTONE [Concomitant]
  6. CORTISONE [Concomitant]
     Indication: IMMUNE THROMBOCYTOPENIC PURPURA

REACTIONS (5)
  - Leukocytosis [Not Recovered/Not Resolved]
  - Eosinophilia [Not Recovered/Not Resolved]
  - Therapeutic response decreased [Not Recovered/Not Resolved]
  - Platelet count decreased [Unknown]
  - Infection [Unknown]
